FAERS Safety Report 23911063 (Version 1)
Quarter: 2024Q2

REPORT INFORMATION
  Report Type: Spontaneous
  Country: US (occurrence: US)
  Receive Date: 20240528
  Receipt Date: 20240528
  Transmission Date: 20240715
  Serious: No
  Sender: FDA-Public Use
  Company Number: US-ALNYLAM PHARMACEUTICALS, INC.-ALN-2024-002909

PATIENT

DRUGS (1)
  1. GIVLAARI [Suspect]
     Active Substance: GIVOSIRAN SODIUM
     Indication: Product used for unknown indication
     Dosage: UNK
     Route: 065

REACTIONS (7)
  - Porphyria acute [Unknown]
  - Polyneuropathy [Unknown]
  - Food craving [Unknown]
  - Fatigue [Unknown]
  - Gastrointestinal disorder [Unknown]
  - Coproporphyrinogen increased [Unknown]
  - Migraine [Unknown]
